FAERS Safety Report 23535729 (Version 2)
Quarter: 2024Q1

REPORT INFORMATION
  Report Type: Report from Study
  Country: NI (occurrence: NI)
  Receive Date: 20240218
  Receipt Date: 20240221
  Transmission Date: 20240409
  Serious: Yes (Other)
  Sender: FDA-Public Use
  Company Number: NI-Merck Healthcare KGaA-2024008389

PATIENT
  Age: 16 Year
  Sex: Male

DRUGS (1)
  1. SAIZEN [Suspect]
     Active Substance: SOMATROPIN
     Indication: Product used for unknown indication
     Dates: start: 20200211

REACTIONS (1)
  - Craniopharyngioma [Recovered/Resolved]

NARRATIVE: CASE EVENT DATE: 20231211
